FAERS Safety Report 25958078 (Version 1)
Quarter: 2025Q4

REPORT INFORMATION
  Report Type: Spontaneous
  Country: EU (occurrence: EU)
  Receive Date: 20251024
  Receipt Date: 20251024
  Transmission Date: 20260119
  Serious: Yes (Hospitalization)
  Sender: GE HEALTHCARE
  Company Number: None

PATIENT
  Age: 47 Year
  Sex: Male

DRUGS (1)
  1. OMNIPAQUE [Suspect]
     Active Substance: IOHEXOL
     Indication: Computerised tomogram
     Dosage: 145 ML, TOTAL
     Route: 042
     Dates: start: 20250908, end: 20250908

REACTIONS (8)
  - General physical health deterioration [Unknown]
  - Hypotension [Unknown]
  - Nausea [Unknown]
  - Hyperhidrosis [Unknown]
  - Back pain [Unknown]
  - Abdominal pain [Unknown]
  - Arthralgia [Unknown]
  - Contrast media reaction [Unknown]

NARRATIVE: CASE EVENT DATE: 20250908
